FAERS Safety Report 5685030-4 (Version None)
Quarter: 2008Q1

REPORT INFORMATION
  Report Type: 
  Country: None (occurrence: None)
  Receive Date: 20080328
  Receipt Date: 19980427
  Transmission Date: 20080703
  Serious: Yes (Death, Other)
  Sender: FDA-Public Use
  Company Number: US-ROCHE-98527

PATIENT
  Age: 81 Year
  Sex: Female

DRUGS (11)
  1. TICLID [Suspect]
     Indication: VERTEBROBASILAR INSUFFICIENCY
     Route: 048
     Dates: start: 19980331
  2. GLUCOTROL [Concomitant]
     Route: 048
  3. PERSANTINE [Concomitant]
  4. ISORDIL [Concomitant]
  5. ZAROXOLYN [Concomitant]
  6. INDERAL LA [Concomitant]
  7. NORVASC [Concomitant]
  8. EQUANIL [Concomitant]
  9. K-DUR [Concomitant]
  10. CLARITIN-D [Concomitant]
  11. CLARITIN-D [Concomitant]

REACTIONS (5)
  - BLOOD LACTATE DEHYDROGENASE INCREASED [None]
  - DEATH [None]
  - MYOCARDIAL INFARCTION [None]
  - THROMBOCYTOPENIA [None]
  - THROMBOTIC THROMBOCYTOPENIC PURPURA [None]
